FAERS Safety Report 25285258 (Version 2)
Quarter: 2025Q2

REPORT INFORMATION
  Report Type: Spontaneous
  Country: JP (occurrence: JP)
  Receive Date: 20250509
  Receipt Date: 20250516
  Transmission Date: 20250717
  Serious: Yes (Other)
  Sender: ABBVIE
  Company Number: JP-ABBVIE-6271756

PATIENT
  Age: 70 Year
  Sex: Female

DRUGS (2)
  1. VENCLEXTA [Suspect]
     Active Substance: VENETOCLAX
     Indication: Acute myeloid leukaemia
     Route: 048
  2. AZACITIDINE [Concomitant]
     Active Substance: AZACITIDINE
     Indication: Acute myeloid leukaemia

REACTIONS (5)
  - Myelosuppression [Not Recovered/Not Resolved]
  - White blood cell count increased [Unknown]
  - Enterocolitis [Unknown]
  - Pancreatitis [Unknown]
  - Mucosal disorder [Unknown]
